FAERS Safety Report 9444045 (Version 3)
Quarter: 2013Q4

REPORT INFORMATION
  Report Type: Spontaneous
  Country: US (occurrence: US)
  Receive Date: 20130807
  Receipt Date: 20131218
  Transmission Date: 20140711
  Serious: Yes (Death, Other)
  Sender: FDA-Public Use
  Company Number: US-ROCHE-1258413

PATIENT
  Age: 67 Year
  Sex: Female

DRUGS (11)
  1. ERIVEDGE [Suspect]
     Indication: BASAL CELL CARCINOMA
     Route: 048
     Dates: start: 20130718, end: 20130722
  2. ERIVEDGE [Suspect]
     Indication: BASAL CELL CARCINOMA
  3. ERIVEDGE [Suspect]
     Indication: BASAL CELL CARCINOMA
  4. ASPIRIN [Concomitant]
     Indication: CORONARY ARTERY DISEASE
     Route: 048
     Dates: start: 20130523
  5. ATORVASTATIN [Concomitant]
     Indication: HYPERLIPIDAEMIA
     Route: 048
     Dates: start: 20130523
  6. CLOPIDOGREL BISULFATE [Concomitant]
     Indication: CORONARY ARTERY DISEASE
     Route: 048
     Dates: start: 20130523
  7. CLOPIDOGREL BISULFATE [Concomitant]
     Indication: ACUTE MYOCARDIAL INFARCTION
  8. METFORMIN [Concomitant]
     Indication: TYPE 2 DIABETES MELLITUS
     Route: 048
     Dates: start: 20130523
  9. METFORMIN [Concomitant]
     Indication: ACUTE MYOCARDIAL INFARCTION
  10. LISINOPRIL [Concomitant]
     Indication: CARDIAC FAILURE CONGESTIVE
     Route: 048
     Dates: start: 20130530
  11. METOPROLOL TARTRATE [Concomitant]
     Indication: ACUTE MYOCARDIAL INFARCTION
     Route: 048
     Dates: start: 20130530

REACTIONS (5)
  - Cardiac arrest [Fatal]
  - Diarrhoea [Fatal]
  - Acute myocardial infarction [Fatal]
  - Lactic acidosis [Fatal]
  - Hyperkalaemia [Fatal]
